FAERS Safety Report 24872668 (Version 1)
Quarter: 2025Q1

REPORT INFORMATION
  Report Type: Spontaneous
  Country: US (occurrence: US)
  Receive Date: 20250122
  Receipt Date: 20250122
  Transmission Date: 20250409
  Serious: No
  Sender: ROCHE
  Company Number: US-ROCHE-10000184678

PATIENT
  Age: 63 Year
  Sex: Male

DRUGS (7)
  1. RITUXAN [Suspect]
     Active Substance: RITUXIMAB
     Indication: Mantle cell lymphoma stage IV
     Route: 042
  2. CYCLOPHOSPHAMIDE [Concomitant]
     Active Substance: CYCLOPHOSPHAMIDE
  3. DOXORUBICIN [Concomitant]
     Active Substance: DOXORUBICIN
  4. PREDNISONE [Concomitant]
     Active Substance: PREDNISONE
  5. VINCRISTINE [Concomitant]
     Active Substance: VINCRISTINE
  6. METHOTREXATE [Concomitant]
     Active Substance: METHOTREXATE
  7. CYTARABINE [Concomitant]
     Active Substance: CYTARABINE

REACTIONS (2)
  - Thrombocytopenia [Unknown]
  - Off label use [Unknown]
